FAERS Safety Report 6566764-6 (Version None)
Quarter: 2010Q1

REPORT INFORMATION
  Report Type: 
  Country: None (occurrence: None)
  Receive Date: 20100202
  Receipt Date: 20100121
  Transmission Date: 20100710
  Serious: Yes (Hospitalization)
  Sender: FDA-Public Use
  Company Number: IL-PFIZER INC-2009238275

PATIENT
  Age: 68 Year
  Sex: Male
  Weight: 57.3 kg

DRUGS (7)
  1. BLINDED *NO SUBJECT DRUG [Suspect]
     Indication: PROSTATE CANCER
     Dosage: 37.5 MG, 1X/DAY
     Route: 048
     Dates: start: 20090611, end: 20090624
  2. BLINDED *PLACEBO [Suspect]
     Indication: PROSTATE CANCER
     Dosage: 37.5 MG, 1X/DAY
     Route: 048
     Dates: start: 20090611, end: 20090624
  3. BLINDED SUNITINIB MALATE [Suspect]
     Indication: PROSTATE CANCER
     Dosage: 37.5 MG, 1X/DAY
     Route: 048
     Dates: start: 20090611, end: 20090624
  4. PREDNISONE [Suspect]
     Indication: PROSTATE CANCER
     Dosage: 5 MG, 2X/DAY
     Route: 048
     Dates: start: 20090611, end: 20090624
  5. LAXADIN [Concomitant]
     Indication: CONSTIPATION
     Dosage: 5 MG, X 1-2/ DAY
     Route: 048
     Dates: start: 20090310
  6. OXYCONTIN [Concomitant]
     Indication: PAIN
     Dosage: 10 MG, X2/DAY
     Route: 048
     Dates: start: 20090425
  7. ZOFRAN [Concomitant]
     Indication: VOMITING
     Dosage: 8 MG, X2/DAY
     Route: 048
     Dates: start: 20090510

REACTIONS (1)
  - VERTIGO [None]
